FAERS Safety Report 18099377 (Version 1)
Quarter: 2020Q3

REPORT INFORMATION
  Report Type: Spontaneous
  Country: FR (occurrence: FR)
  Receive Date: 20200731
  Receipt Date: 20200731
  Transmission Date: 20201103
  Serious: Yes (Other)
  Sender: FDA-Public Use
  Company Number: FR-MYLANLABS-2020M1067557

PATIENT
  Age: 44 Year
  Sex: Male
  Weight: 86 kg

DRUGS (22)
  1. METHOTREXATE MYLAN [Suspect]
     Active Substance: METHOTREXATE SODIUM
     Indication: HIGH GRADE B-CELL LYMPHOMA BURKITT-LIKE LYMPHOMA STAGE II
     Dosage: 6200 MILLIGRAM, QD
     Route: 041
     Dates: start: 20180224, end: 20180313
  2. LEDERFOLINE [Concomitant]
     Active Substance: LEUCOVORIN CALCIUM
     Dosage: UNK
  3. ALPRAZOLAM MYLAN [Concomitant]
     Active Substance: ALPRAZOLAM
     Dosage: UNK
  4. METHYLPREDNISOLONE MYLAN           /00049602/ [Concomitant]
     Active Substance: METHYLPREDNISOLONE SODIUM SUCCINATE
     Dosage: UNK
  5. ENDOXAN                            /00021101/ [Suspect]
     Active Substance: CYCLOPHOSPHAMIDE
     Indication: HIGH GRADE B-CELL LYMPHOMA BURKITT-LIKE LYMPHOMA STAGE II
     Dosage: 1050 MILLIGRAM, QD
     Route: 041
     Dates: start: 20180225, end: 20180316
  6. LANSOPRAZOLE MYLAN [Concomitant]
     Active Substance: LANSOPRAZOLE
     Dosage: UNK
  7. CORTANCYL [Concomitant]
     Active Substance: PREDNISONE
     Dosage: UNK
  8. IMOVANE [Concomitant]
     Active Substance: ZOPICLONE
     Dosage: UNK
  9. CYTARABINE. [Suspect]
     Active Substance: CYTARABINE
     Indication: HIGH GRADE B-CELL LYMPHOMA BURKITT-LIKE LYMPHOMA STAGE II
     Dosage: 40 MILLIGRAM, QD
     Route: 037
     Dates: start: 20180225, end: 20180318
  10. PYLERA [Concomitant]
     Active Substance: BISMUTH SUBCITRATE POTASSIUM\METRONIDAZOLE\TETRACYCLINE HYDROCHLORIDE
     Dosage: UNK
  11. VALIUM [Concomitant]
     Active Substance: DIAZEPAM
     Dosage: UNK
  12. MABTHERA [Suspect]
     Active Substance: RITUXIMAB
     Indication: HIGH GRADE B-CELL LYMPHOMA BURKITT-LIKE LYMPHOMA STAGE II
     Dosage: 780 MILLIGRAM, QD
     Route: 041
     Dates: start: 20180223, end: 20180318
  13. VINCRISTINE HOSPIRA [Suspect]
     Active Substance: VINCRISTINE
     Indication: HIGH GRADE B-CELL LYMPHOMA BURKITT-LIKE LYMPHOMA STAGE II
     Dosage: 2 MILLIGRAM, QD
     Route: 041
     Dates: start: 20180224, end: 20180318
  14. ACETATO DE HIDROCORTISONA [Concomitant]
     Dosage: UNK
  15. METHOTREXATE BIODIM [Suspect]
     Active Substance: METHOTREXATE
     Indication: HIGH GRADE B-CELL LYMPHOMA BURKITT-LIKE LYMPHOMA STAGE II
     Dosage: 15 MILLIGRAM, QD
     Route: 037
     Dates: start: 20180225, end: 20180318
  16. VALACYCLOVIR [Concomitant]
     Active Substance: VALACYCLOVIR HYDROCHLORIDE
     Dosage: UNK
  17. DOXORUBICINE                       /00330901/ [Suspect]
     Active Substance: DOXORUBICIN
     Indication: HIGH GRADE B-CELL LYMPHOMA BURKITT-LIKE LYMPHOMA STAGE II
     Dosage: 125 MILLIGRAM, QD
     Route: 041
     Dates: start: 20180225, end: 20180314
  18. LOVENOX [Concomitant]
     Active Substance: ENOXAPARIN SODIUM
     Dosage: UNK
  19. LEVOFOLINATE DE CALCIUM [Concomitant]
     Active Substance: LEVOLEUCOVORIN CALCIUM
     Dosage: UNK
  20. ZARZIO [Concomitant]
     Active Substance: FILGRASTIM
     Dosage: UNK
  21. PARACETAMOL B BRAUN [Concomitant]
     Active Substance: ACETAMINOPHEN
     Dosage: UNK
  22. POLARAMINE [Concomitant]
     Active Substance: DEXCHLORPHENIRAMINE MALEATE
     Dosage: UNK

REACTIONS (1)
  - Febrile bone marrow aplasia [Recovered/Resolved]

NARRATIVE: CASE EVENT DATE: 20180306
